FAERS Safety Report 12010125 (Version 4)
Quarter: 2016Q1

REPORT INFORMATION
  Report Type: Spontaneous
  Country: JP (occurrence: JP)
  Receive Date: 20160205
  Receipt Date: 20160225
  Transmission Date: 20160526
  Serious: Yes (Hospitalization)
  Sender: FDA-Public Use
  Company Number: JP-BEH-2016058114

PATIENT
  Age: 39 Year
  Sex: Female
  Weight: 55.55 kg

DRUGS (6)
  1. LOXOPROFEN [Suspect]
     Active Substance: LOXOPROFEN
     Indication: ANALGESIC THERAPY
     Route: 048
     Dates: start: 20160107, end: 20160115
  2. LOXOPROFEN [Suspect]
     Active Substance: LOXOPROFEN
     Indication: ANTIINFLAMMATORY THERAPY
     Route: 048
     Dates: start: 20160107, end: 20160115
  3. TEPRENON [Concomitant]
     Indication: GASTRITIS
     Route: 048
     Dates: start: 20160107, end: 20160115
  4. HIZENTRA [Suspect]
     Active Substance: HUMAN IMMUNOGLOBULIN G
     Indication: HYPOGAMMAGLOBULINAEMIA
     Route: 058
     Dates: start: 20160108, end: 20160114
  5. DALACIN S (CLINDAMYCIN PHOSPHATE) [Suspect]
     Active Substance: CLINDAMYCIN PHOSPHATE
     Indication: CELLULITIS
     Route: 042
     Dates: start: 20160107, end: 20160115
  6. CEFAZOLIN SODIUM. [Suspect]
     Active Substance: CEFAZOLIN SODIUM
     Indication: CELLULITIS
     Route: 042
     Dates: start: 20160107, end: 20160115

REACTIONS (6)
  - Erythema [Recovered/Resolved]
  - Rash [Recovered/Resolved]
  - Hypersensitivity [Recovered/Resolved]
  - Skin reaction [Recovered/Resolved]
  - Flushing [Recovered/Resolved]
  - Erythema multiforme [Recovered/Resolved]

NARRATIVE: CASE EVENT DATE: 20160114
